FAERS Safety Report 7083329-0 (Version None)
Quarter: 2010Q4

REPORT INFORMATION
  Report Type: 
  Country: None (occurrence: None)
  Receive Date: 20101104
  Receipt Date: 20101026
  Transmission Date: 20110411
  Serious: Yes (Hospitalization)
  Sender: FDA-Public Use
  Company Number: PHHY2010DK71822

PATIENT
  Sex: Female

DRUGS (1)
  1. LEPONEX [Suspect]
     Indication: SCHIZOPHRENIA
     Route: 048
     Dates: start: 19950101

REACTIONS (3)
  - ORAL SURGERY [None]
  - SUICIDAL BEHAVIOUR [None]
  - TOOTH EROSION [None]
